FAERS Safety Report 21362756 (Version 1)
Quarter: 2022Q3

REPORT INFORMATION
  Report Type: Spontaneous
  Country: US (occurrence: US)
  Receive Date: 20220922
  Receipt Date: 20220922
  Transmission Date: 20221026
  Serious: Yes (Other)
  Sender: FDA-Public Use
  Company Number: US-STRIDES ARCOLAB LIMITED-2022SP010835

PATIENT
  Age: 65 Year
  Sex: Male

DRUGS (5)
  1. PREDNISOLONE [Suspect]
     Active Substance: PREDNISOLONE
     Indication: Diffuse large B-cell lymphoma
     Dosage: UNK (ADMINISTERED UNDER THE R-CHOP CHEMOTHERAPY REGIMEN)
     Route: 065
  2. RITUXIMAB [Suspect]
     Active Substance: RITUXIMAB
     Indication: Diffuse large B-cell lymphoma
     Dosage: UNK (ADMINISTERED UNDER THE R-CHOP CHEMOTHERAPY REGIMEN)
     Route: 065
  3. CYCLOPHOSPHAMIDE [Suspect]
     Active Substance: CYCLOPHOSPHAMIDE
     Indication: Diffuse large B-cell lymphoma
     Dosage: UNK (ADMINISTERED UNDER THE R-CHOP CHEMOTHERAPY REGIMEN)
     Route: 065
  4. DOXORUBICIN [Suspect]
     Active Substance: DOXORUBICIN
     Indication: Diffuse large B-cell lymphoma
     Dosage: UNK (ADMINISTERED UNDER THE R-CHOP CHEMOTHERAPY REGIMEN)
     Route: 065
  5. ONCOVIN [Suspect]
     Active Substance: VINCRISTINE SULFATE
     Indication: Diffuse large B-cell lymphoma
     Dosage: UNK (ADMINISTERED UNDER THE R-CHOP CHEMOTHERAPY REGIMEN)
     Route: 065

REACTIONS (1)
  - Drug ineffective [Unknown]
